FAERS Safety Report 21697733 (Version 2)
Quarter: 2023Q1

REPORT INFORMATION
  Report Type: Spontaneous
  Country: US (occurrence: None)
  Receive Date: 20221208
  Receipt Date: 20230106
  Transmission Date: 20230417
  Serious: No
  Sender: FDA-Public Use
  Company Number: 2022A375054

PATIENT
  Age: 23121 Day
  Sex: Female

DRUGS (17)
  1. TEZSPIRE [Suspect]
     Active Substance: TEZEPELUMAB-EKKO
     Indication: Asthma
     Route: 058
     Dates: start: 20220411
  2. TEZSPIRE [Suspect]
     Active Substance: TEZEPELUMAB-EKKO
     Indication: Asthma
     Route: 058
     Dates: start: 20221104
  3. PULMICORT TURBUHALER [Suspect]
     Active Substance: BUDESONIDE
     Dosage: 0.5 MG / 2 ML
     Route: 055
     Dates: start: 20221122
  4. CRESTOR [Suspect]
     Active Substance: ROSUVASTATIN CALCIUM
     Route: 048
     Dates: start: 20210713
  5. AMOXICILIN-CLAVULANATE (AUGMENTIN) [Concomitant]
     Route: 048
  6. AZELAIC ACID [Concomitant]
     Active Substance: AZELAIC ACID
  7. AZELASTINE [Concomitant]
     Active Substance: AZELASTINE
     Route: 045
  8. BOTULINUM TOXIN TYPE A (BOTOX) [Concomitant]
     Route: 030
  9. BUDESONIDE(PULMICORT) [Concomitant]
  10. CANDESARTAN(ATACAND) [Concomitant]
     Route: 048
  11. DEXLANSOPRAZOLE(DEXILANT) [Concomitant]
     Route: 048
  12. DEXTRAN 70-HYPROMELLOSE ARTIFICIAL TEARS, DEXTRO70-HYPRO.) [Concomitant]
  13. DICLOFENAC(VOLTAREN) [Concomitant]
  14. EPINEPHRINE(EPIPEN) [Concomitant]
     Dosage: 0.3ML AS REQUIRED
     Route: 030
  15. ERGOCALCIFEROL(VITAMIN D2) [Concomitant]
     Route: 048
  16. ESTRADIOL(CLIMARA) [Concomitant]
  17. FLUTICASONE PROPIONATE(FLONASE) [Concomitant]

REACTIONS (1)
  - Conjunctivitis [Not Recovered/Not Resolved]

NARRATIVE: CASE EVENT DATE: 20221105
